FAERS Safety Report 7034493-0 (Version None)
Quarter: 2010Q4

REPORT INFORMATION
  Report Type: 
  Country: None (occurrence: None)
  Receive Date: 20101008
  Receipt Date: 20100930
  Transmission Date: 20110411
  Serious: Yes (Death, Hospitalization)
  Sender: FDA-Public Use
  Company Number: ES-CELGENEUS-144-50794-10100127

PATIENT
  Age: 65 Year
  Sex: Male

DRUGS (3)
  1. VIDAZA [Suspect]
     Route: 050
     Dates: start: 20090806, end: 20090819
  2. VIDAZA [Suspect]
     Route: 050
     Dates: start: 20091006, end: 20091014
  3. VIDAZA [Suspect]
     Route: 050
     Dates: start: 20091103, end: 20091111

REACTIONS (9)
  - BACK PAIN [None]
  - DEATH [None]
  - GASTROENTERITIS [None]
  - GENERAL SYMPTOM [None]
  - HAEMOTHORAX [None]
  - OROPHARYNGEAL CANDIDIASIS [None]
  - PHLEBITIS [None]
  - PNEUMONIA [None]
  - RETROPERITONEAL HAEMATOMA [None]
